FAERS Safety Report 13692139 (Version 2)
Quarter: 2017Q2

REPORT INFORMATION
  Report Type: Report from Study
  Country: None (occurrence: CO)
  Receive Date: 20170627
  Receipt Date: 20170628
  Transmission Date: 20170830
  Serious: Yes (Other)
  Sender: FDA-Public Use
  Company Number: CO-ABBVIE-17K-036-2018505-00

PATIENT
  Age: 49 Year
  Sex: Male
  Weight: 45 kg

DRUGS (3)
  1. HUMIRA [Suspect]
     Active Substance: ADALIMUMAB
     Route: 058
     Dates: start: 20170621
  2. PREDNISOLONE. [Concomitant]
     Active Substance: PREDNISOLONE
     Indication: PRODUCT USED FOR UNKNOWN INDICATION
  3. HUMIRA [Suspect]
     Active Substance: ADALIMUMAB
     Indication: ANKYLOSING SPONDYLITIS
     Route: 058
     Dates: start: 20131101, end: 20170520

REACTIONS (3)
  - Papilloma [Recovering/Resolving]
  - Proctalgia [Recovering/Resolving]
  - Anal pruritus [Recovering/Resolving]

NARRATIVE: CASE EVENT DATE: 20170605
